FAERS Safety Report 9407194 (Version 1)
Quarter: 2013Q3

REPORT INFORMATION
  Report Type: Spontaneous
  Country: BR (occurrence: BR)
  Receive Date: 20130718
  Receipt Date: 20130718
  Transmission Date: 20140515
  Serious: Yes (Other)
  Sender: FDA-Public Use
  Company Number: BR-PFIZER INC-2013210133

PATIENT
  Age: 16 Year
  Sex: Female
  Weight: 42 kg

DRUGS (3)
  1. FRONTAL SL [Suspect]
     Indication: SUICIDE ATTEMPT
     Dosage: UNK
     Dates: start: 201306
  2. FRONTAL [Suspect]
     Indication: SUICIDE ATTEMPT
     Dosage: 2 MG (1 TABLET), 1X/DAY
     Dates: start: 201306
  3. DEPAKOTE [Concomitant]
     Dosage: UNK

REACTIONS (3)
  - Off label use [Unknown]
  - Aggression [Recovered/Resolved]
  - Abnormal behaviour [Recovered/Resolved]
